FAERS Safety Report 6124705-X (Version None)
Quarter: 2009Q1

REPORT INFORMATION
  Report Type: 
  Country: None (occurrence: None)
  Receive Date: 20090319
  Receipt Date: 20090310
  Transmission Date: 20090719
  Serious: Yes (Other)
  Sender: FDA-Public Use
  Company Number: PHEH2009US01202

PATIENT
  Sex: Female

DRUGS (1)
  1. METOPROLOL TARTRATE AND HYDROCHLOROTHIAZIDE [Suspect]
     Dosage: 50/25
     Dates: start: 20020101

REACTIONS (3)
  - MYOCARDIAL INFARCTION [None]
  - PALLOR [None]
  - PRESYNCOPE [None]
